FAERS Safety Report 13730744 (Version 1)
Quarter: 2017Q3

REPORT INFORMATION
  Report Type: Spontaneous
  Country: US (occurrence: US)
  Receive Date: 20170707
  Receipt Date: 20170707
  Transmission Date: 20171127
  Serious: No
  Sender: FDA-Public Use
  Company Number: US-GLAXOSMITHKLINE-US2017101837

PATIENT
  Sex: Female

DRUGS (1)
  1. ABREVA [Suspect]
     Active Substance: DOCOSANOL
     Indication: ORAL HERPES
     Dosage: UNK
     Dates: start: 20170628

REACTIONS (5)
  - Oral herpes [Recovered/Resolved]
  - Paraesthesia oral [Recovered/Resolved]
  - Oral discomfort [Recovered/Resolved]
  - Application site erythema [Recovered/Resolved]
  - Condition aggravated [Recovered/Resolved]
